FAERS Safety Report 5256514-8 (Version None)
Quarter: 2007Q1

REPORT INFORMATION
  Report Type: 
  Country: None (occurrence: None)
  Receive Date: 20061204
  Receipt Date: 20060905
  Transmission Date: 20070707
  Serious: No
  Sender: FDA-Public Use
  Company Number: 2006-BP-09389BP

PATIENT
  Age: 74 Year
  Sex: Male

DRUGS (15)
  1. SPIRIVA [Suspect]
     Indication: CHRONIC OBSTRUCTIVE PULMONARY DISEASE
     Dosage: 18 MCG (18 MCG, QD), IH
     Route: 055
     Dates: start: 20040101
  2. SPIRIVA [Suspect]
     Indication: LUNG NEOPLASM MALIGNANT
  3. ADVAIR (SERETIDE /01420901/) [Concomitant]
  4. ATENOLOL [Concomitant]
  5. ACTOS [Concomitant]
  6. NEXIUM [Concomitant]
  7. MICARDIS [Concomitant]
  8. SYNTHROID [Concomitant]
  9. LEXAPRO [Concomitant]
  10. TERAZOSIN HCL [Concomitant]
  11. VYTORIN [Concomitant]
  12. FOLIC ACID [Concomitant]
  13. ASPIRIN [Concomitant]
  14. CENTRUM MULTIVITAMINS (MULTIVITAMINS) [Concomitant]
  15. GLUCOSAMINE 750MG/ CHONDROTIN 600 MG (ALL OTHER THERAPEUTIC PRODUCTS) [Concomitant]

REACTIONS (3)
  - AGEUSIA [None]
  - COUGH [None]
  - DRUG INEFFECTIVE [None]
